FAERS Safety Report 17412849 (Version 2)
Quarter: 2020Q1

REPORT INFORMATION
  Report Type: Spontaneous
  Country: US (occurrence: US)
  Receive Date: 20200213
  Receipt Date: 20200305
  Transmission Date: 20200409
  Serious: Yes (Hospitalization, Other)
  Sender: FDA-Public Use
  Company Number: US-ASTRAZENECA-2020SE19788

PATIENT
  Age: 892 Month
  Sex: Female
  Weight: 120 kg

DRUGS (2)
  1. BYDUREON [Suspect]
     Active Substance: EXENATIDE
     Indication: TYPE 2 DIABETES MELLITUS
     Route: 058
     Dates: end: 201802
  2. BYDUREON [Suspect]
     Active Substance: EXENATIDE
     Indication: TYPE 2 DIABETES MELLITUS
     Route: 058
     Dates: start: 20200127

REACTIONS (6)
  - Mobility decreased [Recovered/Resolved]
  - Vomiting [Recovered/Resolved]
  - Incisional hernia [Unknown]
  - Neoplasm malignant [Recovered/Resolved]
  - Memory impairment [Unknown]
  - Device leakage [Unknown]

NARRATIVE: CASE EVENT DATE: 201801
